FAERS Safety Report 19850278 (Version 3)
Quarter: 2022Q3

REPORT INFORMATION
  Report Type: Report from Study
  Country: GB (occurrence: GB)
  Receive Date: 20210918
  Receipt Date: 20220803
  Transmission Date: 20221027
  Serious: Yes (Life-Threatening, Other)
  Sender: FDA-Public Use
  Company Number: GB-NOVARTISPH-NVSC2021GB207952

PATIENT
  Sex: Male

DRUGS (2)
  1. GILENYA [Suspect]
     Active Substance: FINGOLIMOD HYDROCHLORIDE
     Indication: Relapsing-remitting multiple sclerosis
     Dosage: 0.5 MG, QD
     Route: 065
     Dates: start: 20210804
  2. GILENYA [Suspect]
     Active Substance: FINGOLIMOD HYDROCHLORIDE
     Indication: Multiple sclerosis

REACTIONS (11)
  - Suicidal ideation [Unknown]
  - Feeling abnormal [Unknown]
  - Musculoskeletal stiffness [Unknown]
  - Skin tightness [Unknown]
  - Muscular weakness [Unknown]
  - Fall [Unknown]
  - Melanocytic naevus [Unknown]
  - Back pain [Unknown]
  - Fatigue [Unknown]
  - Nausea [Unknown]
  - Dizziness [Unknown]
